FAERS Safety Report 15274274 (Version 3)
Quarter: 2019Q2

REPORT INFORMATION
  Report Type: Spontaneous
  Country: US (occurrence: US)
  Receive Date: 20180814
  Receipt Date: 20190514
  Transmission Date: 20190711
  Serious: Yes (Hospitalization, Other)
  Sender: FDA-Public Use
  Company Number: US-AUROBINDO-AUR-APL-2018-040988

PATIENT

DRUGS (2)
  1. PREDNISONE. [Suspect]
     Active Substance: PREDNISONE
     Indication: SYSTEMIC LUPUS ERYTHEMATOSUS
     Dosage: UNK
     Route: 065
  2. PREDNISONE. [Suspect]
     Active Substance: PREDNISONE
     Dosage: 15 MILLIGRAM, DAILY
     Route: 065

REACTIONS (17)
  - Pituitary tumour benign [Unknown]
  - Amenorrhoea [Unknown]
  - Blood corticotrophin increased [Unknown]
  - Secondary hypogonadism [Unknown]
  - Disease progression [Unknown]
  - Hyperglycaemia [Recovered/Resolved]
  - Headache [Unknown]
  - Diabetes mellitus [Recovered/Resolved]
  - Acne [Unknown]
  - Weight increased [Unknown]
  - Blood prolactin increased [Recovered/Resolved]
  - Cushing^s syndrome [Unknown]
  - Galactorrhoea [Unknown]
  - Oedema peripheral [Unknown]
  - Obesity [Unknown]
  - Hyperadrenocorticism [Unknown]
  - Skin striae [Unknown]
